FAERS Safety Report 4283387-2 (Version None)
Quarter: 2004Q1

REPORT INFORMATION
  Report Type: 
  Country: None (occurrence: None)
  Receive Date: 20040115
  Receipt Date: 20030904
  Transmission Date: 20041129
  Serious: Yes (Other)
  Sender: FDA-Public Use
  Company Number: US-JNJFOC-20030804241

PATIENT
  Age: 72 Year
  Sex: Female

DRUGS (8)
  1. DOXIL [Suspect]
     Indication: OVARIAN CANCER
     Dosage: 50 MG/M2, 1 IN 28 DAY, INTRAVENOUS DRIP
     Route: 041
     Dates: start: 20030128, end: 20030508
  2. METOPROLOL [Concomitant]
  3. ZESTRIL [Concomitant]
  4. PAXIL [Concomitant]
  5. PRAVACHOL [Concomitant]
  6. ATIVAN [Concomitant]
  7. FOSAMAX [Concomitant]
  8. LANOXIN [Concomitant]

REACTIONS (1)
  - MALIGNANT NEOPLASM PROGRESSION [None]
